FAERS Safety Report 7613520-3 (Version None)
Quarter: 2011Q3

REPORT INFORMATION
  Report Type: 
  Country: None (occurrence: None)
  Receive Date: 20110708
  Receipt Date: 20110628
  Transmission Date: 20111222
  Serious: Yes (Hospitalization)
  Sender: FDA-Public Use
  Company Number: WAES 1106USA01985

PATIENT
  Age: 32 Year
  Sex: Male
  Weight: 75.7507 kg

DRUGS (14)
  1. BACTRIM [Concomitant]
  2. COLACE [Concomitant]
  3. CALCIUM CARBONATE [Concomitant]
  4. SYNTHROID [Concomitant]
  5. XANAX [Concomitant]
  6. OXYCODONE HCL [Concomitant]
  7. NEURONTIN [Concomitant]
  8. LORATADINE [Concomitant]
  9. AMBIEN [Concomitant]
  10. EXCEDRIN (ACETAMINOPHEN (+) CAFFU [Concomitant]
  11. LEXAPRO [Concomitant]
  12. PREVACID [Concomitant]
  13. CAP VORINOSTAT UNK [Suspect]
     Indication: HODGKIN'S DISEASE
     Dosage: 400 MG/DAILY/PO
     Route: 048
     Dates: start: 20110217
  14. NIACINAMIDE UNK [Suspect]
     Indication: HODGKIN'S DISEASE
     Dosage: 7700 MG, DAILY, PO; 6200 MG, DAILY, PO
     Route: 048
     Dates: start: 20110217

REACTIONS (3)
  - BLOOD CULTURE POSITIVE [None]
  - STAPHYLOCOCCAL BACTERAEMIA [None]
  - DEVICE RELATED INFECTION [None]
